FAERS Safety Report 5019407-7 (Version None)
Quarter: 2006Q2

REPORT INFORMATION
  Report Type: 
  Country: None (occurrence: None)
  Receive Date: 20060601
  Receipt Date: 20060517
  Transmission Date: 20061013
  Serious: Yes (Hospitalization)
  Sender: FDA-Public Use
  Company Number: 2006BI007222

PATIENT
  Age: 33 Year
  Sex: Female

DRUGS (10)
  1. AVONEX [Suspect]
     Indication: MULTIPLE SCLEROSIS
     Dosage: 30 UG;QW;IM
     Route: 030
     Dates: start: 20021201, end: 20030801
  2. AVONEX [Suspect]
     Indication: MULTIPLE SCLEROSIS
     Dosage: 30 UG;QW;IM
     Route: 030
     Dates: start: 20030801, end: 20060501
  3. AVONEX [Suspect]
     Indication: MULTIPLE SCLEROSIS
     Dosage: 30 UG;QW;IM
     Route: 030
     Dates: start: 20060501
  4. FLOVENT [Concomitant]
  5. SEROVENT [Concomitant]
  6. ALBUTEROL [Concomitant]
  7. SINGULAIR [Concomitant]
  8. PREVACID [Concomitant]
  9. DIOVAN [Concomitant]
  10. ZYRTEC [Concomitant]

REACTIONS (16)
  - ARTHRALGIA [None]
  - ASTHMA [None]
  - DIZZINESS [None]
  - DYSMENORRHOEA [None]
  - ENDOMETRIOSIS [None]
  - FALL [None]
  - HEADACHE [None]
  - INFLUENZA LIKE ILLNESS [None]
  - METRORRHAGIA [None]
  - OVARIAN CYST [None]
  - PAIN [None]
  - PHARYNGEAL OEDEMA [None]
  - PHARYNGITIS STREPTOCOCCAL [None]
  - PHOTOPHOBIA [None]
  - TONSILLITIS [None]
  - WHEEZING [None]
